FAERS Safety Report 10449204 (Version 1)
Quarter: 2014Q3

REPORT INFORMATION
  Report Type: Spontaneous
  Country: US (occurrence: US)
  Receive Date: 20140912
  Receipt Date: 20140912
  Transmission Date: 20150326
  Serious: No
  Sender: FDA-Public Use
  Company Number: US-SHIRE-US201405758

PATIENT
  Age: 10 Year
  Sex: Male

DRUGS (2)
  1. VYVANSE [Suspect]
     Active Substance: LISDEXAMFETAMINE DIMESYLATE
     Indication: ATTENTION DEFICIT/HYPERACTIVITY DISORDER
     Dosage: 20 MG, 1X/DAY:QD
     Route: 048
     Dates: start: 201409
  2. ANTI-ASTHMATICS [Concomitant]
     Active Substance: UNSPECIFIED INGREDIENT
     Indication: ASTHMA
     Dosage: UNK, UNKNOWN
     Route: 065

REACTIONS (3)
  - Abdominal pain upper [Unknown]
  - Headache [Unknown]
  - Insomnia [Unknown]

NARRATIVE: CASE EVENT DATE: 201409
